FAERS Safety Report 6989954-7 (Version None)
Quarter: 2010Q3

REPORT INFORMATION
  Report Type: 
  Country: None (occurrence: None)
  Receive Date: 20100916
  Receipt Date: 20100910
  Transmission Date: 20110219
  Serious: Yes (Hospitalization)
  Sender: FDA-Public Use
  Company Number: GB-ABBOTT-10P-167-0669636-00

PATIENT
  Age: 69 Year
  Sex: Male

DRUGS (3)
  1. HUMIRA [Suspect]
     Indication: PSORIASIS
     Route: 058
     Dates: start: 20081018
  2. ZOCOR [Concomitant]
     Indication: BLOOD CHOLESTEROL INCREASED
     Dates: start: 20070101, end: 20100705
  3. IRBESARTAN [Concomitant]
     Indication: HYPERTENSION
     Dates: start: 20070101

REACTIONS (4)
  - DECREASED APPETITE [None]
  - MALAISE [None]
  - NAUSEA [None]
  - PYREXIA [None]
